FAERS Safety Report 10783936 (Version 2)
Quarter: 2015Q1

REPORT INFORMATION
  Report Type: Report from Study
  Country: DE (occurrence: DE)
  Receive Date: 20150210
  Receipt Date: 20150217
  Transmission Date: 20150721
  Serious: Yes (Disabling)
  Sender: FDA-Public Use
  Company Number: DE-ROCHE-1535198

PATIENT
  Age: 73 Year
  Sex: Female

DRUGS (4)
  1. BEVACIZUMAB [Suspect]
     Active Substance: BEVACIZUMAB
     Route: 042
     Dates: start: 20130219, end: 20130219
  2. BEVACIZUMAB [Suspect]
     Active Substance: BEVACIZUMAB
     Indication: BREAST CANCER
     Route: 042
     Dates: start: 20130115, end: 20130115
  3. PACLITAXEL. [Concomitant]
     Active Substance: PACLITAXEL
     Indication: BREAST CANCER
     Dosage: EVERY 4TH WEEK ON DAY 1, 8, 15?SAME DOSE 120 MG ON 15/JAN/2013, ON 22/JAN/2013, ON 05/FEB/2013, ON 1
     Route: 042
     Dates: start: 20130108
  4. PACLITAXEL. [Concomitant]
     Active Substance: PACLITAXEL
     Dosage: EVERY 4TH WEEK ON DAY 1, 8, 15?SAME DOSE 100 MG ON 14/MAR/2013, ON 21/MAR/2013, ON 04/APR/2013, ON 1
     Route: 042
     Dates: start: 20130307

REACTIONS (1)
  - Polyneuropathy [Not Recovered/Not Resolved]

NARRATIVE: CASE EVENT DATE: 20130219
